FAERS Safety Report 24049076 (Version 1)
Quarter: 2024Q3

REPORT INFORMATION
  Report Type: Spontaneous
  Country: PT (occurrence: PT)
  Receive Date: 20240704
  Receipt Date: 20240704
  Transmission Date: 20241017
  Serious: Yes (Other)
  Sender: BOEHRINGER INGELHEIM
  Company Number: PT-BoehringerIngelheim-2024-BI-037334

PATIENT
  Age: 72 Year
  Sex: Male

DRUGS (19)
  1. NINTEDANIB [Suspect]
     Active Substance: NINTEDANIB
     Indication: Idiopathic pulmonary fibrosis
  2. NINTEDANIB [Suspect]
     Active Substance: NINTEDANIB
     Dates: start: 20200427
  3. MORPHINE SULFATE [Concomitant]
     Active Substance: MORPHINE SULFATE
     Indication: Product used for unknown indication
     Dosage: IN SOS, IF DYSPNEA AND BEFORE EFFORTS ORAMORPH 2 DROPS (2,5MG) EVERY 4/4H (MAXIMUM)
  4. MORPHINE SULFATE [Concomitant]
     Active Substance: MORPHINE SULFATE
     Dosage: 20 MG/ML 4 DROPS (5 MG) 15 MINUTES BEFORE HYGIENE CARE
  5. MORPHINE SULFATE [Concomitant]
     Active Substance: MORPHINE SULFATE
     Dosage: IN SOS:?IF SHORTNESS OF BREATH/DRY COUGH AND BEFORE EFFORTS: ORAMORPH 4 DROPS (5 MG) HALF AN HOUR BE
  6. O2 via nasal cannula at 3L/min [Concomitant]
     Indication: Product used for unknown indication
  7. O2 via nasal cannula at 3L/min [Concomitant]
  8. FLUIMUCIL [Concomitant]
     Active Substance: ACETYLCYSTEINE
     Indication: Product used for unknown indication
  9. ELIQUIS [Concomitant]
     Active Substance: APIXABAN
     Indication: Product used for unknown indication
  10. HERBESSER [Concomitant]
     Active Substance: DILTIAZEM HYDROCHLORIDE
     Indication: Product used for unknown indication
  11. LORAZEPAM [Concomitant]
     Active Substance: LORAZEPAM
     Indication: Product used for unknown indication
     Dosage: 1 MG AT BEDTIME - IF INSOMNIA, TAKE 1 MORE TABLET
  12. PAROXETINE [Concomitant]
     Active Substance: PAROXETINE
     Indication: Product used for unknown indication
  13. PENTOXIFYLLINE [Concomitant]
     Active Substance: PENTOXIFYLLINE
     Indication: Product used for unknown indication
  14. ROSUVASTATIN [Concomitant]
     Active Substance: ROSUVASTATIN
     Indication: Product used for unknown indication
     Dosage: 20MG AT THE DINNER
  15. Valsartan+HCTZ [Concomitant]
     Indication: Product used for unknown indication
     Dosage: VALSARTAN HCTZ 160+25 MG IN THE MORNING
  16. Valsartan+HCTZ [Concomitant]
     Dosage: VALSARTAN HCTZ 160+25 MG AT NIGHT
  17. Fentanyl TD [Concomitant]
     Indication: Product used for unknown indication
     Dosage: 12.5 UG/H HALF SEAL TO REPLACE EVERY 3 DAYS
     Route: 062
  18. ESCITALOPRAM [Concomitant]
     Active Substance: ESCITALOPRAM OXALATE
     Indication: Product used for unknown indication
  19. BROMAZEPAM [Concomitant]
     Active Substance: BROMAZEPAM
     Indication: Product used for unknown indication
     Dosage: 3 AT LUNCH

REACTIONS (22)
  - Cerebellar ischaemia [Unknown]
  - General physical health deterioration [Unknown]
  - Asthenia [Unknown]
  - Dyspnoea at rest [Unknown]
  - Cheilitis [Unknown]
  - Dyspnoea exertional [Unknown]
  - Fall [Unknown]
  - Cachexia [Unknown]
  - Nausea [Unknown]
  - Performance status decreased [Unknown]
  - Rhinorrhoea [Recovered/Resolved]
  - Productive cough [Unknown]
  - Diarrhoea [Recovering/Resolving]
  - Headache [Unknown]
  - Chest pain [Unknown]
  - Insomnia [Unknown]
  - Feeling abnormal [Unknown]
  - Weight decreased [Unknown]
  - Stomatitis [Unknown]
  - Balance disorder [Unknown]
  - Atrial fibrillation [Unknown]
  - Abdominal distension [Unknown]

NARRATIVE: CASE EVENT DATE: 20240101
